FAERS Safety Report 10771236 (Version 3)
Quarter: 2015Q2

REPORT INFORMATION
  Report Type: Spontaneous
  Country: US (occurrence: US)
  Receive Date: 20150206
  Receipt Date: 20150430
  Transmission Date: 20150821
  Serious: Yes (Hospitalization)
  Sender: FDA-Public Use
  Company Number: US-BAYER-2015-014700

PATIENT
  Age: 25 Year
  Sex: Female
  Weight: 93.88 kg

DRUGS (8)
  1. FIORICET [Concomitant]
     Active Substance: ACETAMINOPHEN\BUTALBITAL\CAFFEINE
     Indication: HEADACHE
  2. YAZ [Suspect]
     Active Substance: DROSPIRENONE\ETHINYL ESTRADIOL
     Indication: DYSFUNCTIONAL UTERINE BLEEDING
     Dosage: UNK
     Dates: start: 201011, end: 20110119
  3. IBUPROFEN. [Concomitant]
     Active Substance: IBUPROFEN
  4. IRON [Concomitant]
     Active Substance: IRON
  5. BEYAZ [Suspect]
     Active Substance: DROSPIRENONE\ETHINYL ESTRADIOL\LEVOMEFOLATE CALCIUM
     Dosage: UNK
     Dates: start: 201011, end: 201101
  6. VALIUM [Concomitant]
     Active Substance: DIAZEPAM
  7. PERCOCET [Concomitant]
     Active Substance: ACETAMINOPHEN\OXYCODONE HYDROCHLORIDE
  8. DOXYCYCLINE HYCLATE. [Concomitant]
     Active Substance: DOXYCYCLINE HYCLATE
     Dosage: 100 MG, UNK
     Route: 048
     Dates: start: 20101028

REACTIONS (8)
  - Pulmonary embolism [None]
  - Deep vein thrombosis [None]
  - Thrombosis [None]
  - Deep vein thrombosis [None]
  - Pain [None]
  - Pain in extremity [None]
  - Peripheral swelling [None]
  - Injury [None]

NARRATIVE: CASE EVENT DATE: 20110120
